FAERS Safety Report 24397920 (Version 2)
Quarter: 2024Q4

REPORT INFORMATION
  Report Type: Spontaneous
  Country: US (occurrence: US)
  Receive Date: 20241004
  Receipt Date: 20241118
  Transmission Date: 20250115
  Serious: Yes (Hospitalization, Other)
  Sender: PFIZER
  Company Number: US-PFIZER INC-PV202400128534

PATIENT
  Age: 65 Year
  Sex: Female

DRUGS (3)
  1. INLYTA [Suspect]
     Active Substance: AXITINIB
     Dosage: UNK
     Dates: start: 20240925
  2. INLYTA [Suspect]
     Active Substance: AXITINIB
     Dosage: 10 MG
  3. INLYTA [Suspect]
     Active Substance: AXITINIB
     Dosage: 4 MG

REACTIONS (8)
  - Diarrhoea [Unknown]
  - Nausea [Unknown]
  - Vomiting [Unknown]
  - Cardiac failure congestive [Unknown]
  - Brain fog [Unknown]
  - Diarrhoea [Unknown]
  - Blood pressure increased [Unknown]
  - Dysphonia [Unknown]

NARRATIVE: CASE EVENT DATE: 20240927
